FAERS Safety Report 9296500 (Version 1)
Quarter: 2013Q2

REPORT INFORMATION
  Report Type: Spontaneous
  Country: CN (occurrence: CN)
  Receive Date: 20130517
  Receipt Date: 20130517
  Transmission Date: 20140414
  Serious: Yes (Life-Threatening)
  Sender: FDA-Public Use
  Company Number: CN-ASTRAZENECA-2013SE33540

PATIENT
  Age: 25567 Day
  Sex: Male
  Weight: 52 kg

DRUGS (6)
  1. BUDESONIDE SUSPENSION [Suspect]
     Indication: ASTHMA
     Route: 055
     Dates: start: 20120210, end: 20120212
  2. CEFOTAXIME SODIUM [Suspect]
     Indication: ASTHMA
     Route: 041
     Dates: start: 20120210, end: 20120212
  3. IPRATROPIUM BROMIDE [Suspect]
     Indication: ASTHMA
     Route: 055
     Dates: start: 20120210, end: 20120212
  4. DIPROPHYLLINE [Concomitant]
     Indication: ASTHMA
     Route: 041
     Dates: start: 20120210, end: 20120212
  5. LEVOFLOXACIN HYDROCHLORIDE [Concomitant]
     Indication: ASTHMA
     Route: 041
     Dates: start: 20120210, end: 20120212
  6. AMBROXOL [Concomitant]

REACTIONS (9)
  - Tachypnoea [Recovered/Resolved]
  - Dyspnoea [Recovered/Resolved]
  - Heart rate increased [Recovered/Resolved]
  - Blood pressure increased [Recovered/Resolved]
  - Oxygen saturation decreased [Recovered/Resolved]
  - Depressed level of consciousness [Recovered/Resolved]
  - Dysphoria [Recovered/Resolved]
  - Pruritus [Recovered/Resolved]
  - Rash papular [Recovered/Resolved]
